FAERS Safety Report 4917487-8 (Version None)
Quarter: 2006Q1

REPORT INFORMATION
  Report Type: 
  Country: None (occurrence: None)
  Receive Date: 20060221
  Receipt Date: 20051128
  Transmission Date: 20060701
  Serious: Yes (Other)
  Sender: FDA-Public Use
  Company Number: PHBS2005JP17697

PATIENT
  Age: 18 Year
  Sex: Male

DRUGS (1)
  1. VOLTAREN [Suspect]
     Dosage: 12.5 MG/DAY
     Route: 054
     Dates: start: 19921201, end: 19930101

REACTIONS (1)
  - OCULOMUCOCUTANEOUS SYNDROME [None]
